FAERS Safety Report 13373532 (Version 1)
Quarter: 2017Q1

REPORT INFORMATION
  Report Type: Spontaneous
  Country: US (occurrence: US)
  Receive Date: 20170327
  Receipt Date: 20170327
  Transmission Date: 20170429
  Serious: Yes (Other)
  Sender: FDA-Public Use
  Company Number: US-LPDUSPRD-20170323

PATIENT
  Age: 46 Year
  Sex: Female
  Weight: 54 kg

DRUGS (7)
  1. MIDAZOLAM [Suspect]
     Active Substance: MIDAZOLAM HYDROCHLORIDE
     Dosage: 3 MG
     Route: 065
  2. DOPAMINE HCL [Suspect]
     Active Substance: DOPAMINE HYDROCHLORIDE
  3. REMIFENTANIL [Suspect]
     Active Substance: REMIFENTANIL
     Dosage: 20 MCG
  4. PLASMA-LYTE [Concomitant]
     Active Substance: ELECTROLYTES NOS
     Dosage: 8500 L
  5. PROPOFOL. [Suspect]
     Active Substance: PROPOFOL
     Dosage: 50 MG
     Route: 065
  6. ROCURONIUM [Suspect]
     Active Substance: ROCURONIUM BROMIDE
     Dosage: 50 MG
  7. PHENYLEPHRINE HCL [Suspect]
     Active Substance: PHENYLEPHRINE HYDROCHLORIDE
     Dosage: 7.74 MG
     Route: 042

REACTIONS (1)
  - Diabetes insipidus [Unknown]
